FAERS Safety Report 7013381-X (Version None)
Quarter: 2010Q3

REPORT INFORMATION
  Report Type: 
  Country: None (occurrence: None)
  Receive Date: 20100910
  Receipt Date: 20100823
  Transmission Date: 20110219
  Serious: Yes (Hospitalization, Other)
  Sender: FDA-Public Use
  Company Number: 20100415

PATIENT
  Age: 44 Year
  Sex: Female

DRUGS (1)
  1. METHYLENE BLUE INJECTION, USP (0310-10) 10 MG/ML [Suspect]
     Indication: BIOPSY LYMPH GLAND
     Dosage: SUBCUTANEOUS
     Route: 058

REACTIONS (5)
  - HYPERSENSITIVITY [None]
  - HYPERTENSION [None]
  - INCREASED BRONCHIAL SECRETION [None]
  - PULMONARY OEDEMA [None]
  - TACHYCARDIA [None]
